FAERS Safety Report 9122427 (Version 1)
Quarter: 2013Q1

REPORT INFORMATION
  Report Type: Spontaneous
  Country: US (occurrence: US)
  Receive Date: 20130114
  Receipt Date: 20130114
  Transmission Date: 20140127
  Serious: Yes (Other)
  Sender: FDA-Public Use
  Company Number: US-BAYER-2013-002371

PATIENT
  Sex: Female

DRUGS (1)
  1. STIVARGA [Suspect]
     Indication: COLORECTAL CANCER METASTATIC
     Dosage: 120 MG, (TAKING IN CYCLES)
     Route: 048
     Dates: end: 201212

REACTIONS (3)
  - Rash erythematous [None]
  - Fatigue [None]
  - Hepatotoxicity [None]
